FAERS Safety Report 25139377 (Version 1)
Quarter: 2025Q1

REPORT INFORMATION
  Report Type: Spontaneous
  Country: CN (occurrence: CN)
  Receive Date: 20250331
  Receipt Date: 20250331
  Transmission Date: 20250409
  Serious: Yes (Hospitalization, Other)
  Sender: MANKIND PHARMA
  Company Number: CN-MankindUS-000350

PATIENT
  Age: 60 Year
  Sex: Female

DRUGS (3)
  1. BACLOFEN [Suspect]
     Active Substance: BACLOFEN
     Indication: Muscle spasms
     Route: 048
     Dates: start: 20231108, end: 2023
  2. CITALOPRAM [Concomitant]
     Active Substance: CITALOPRAM
  3. OXCARBAZEPINE [Concomitant]
     Active Substance: OXCARBAZEPINE

REACTIONS (1)
  - Central sleep apnoea syndrome [Recovered/Resolved]

NARRATIVE: CASE EVENT DATE: 20231113
